FAERS Safety Report 5143030-7 (Version None)
Quarter: 2006Q4

REPORT INFORMATION
  Report Type: 
  Country: None (occurrence: None)
  Receive Date: 20061103
  Receipt Date: 20060329
  Transmission Date: 20070319
  Serious: Yes (Hospitalization)
  Sender: FDA-Public Use
  Company Number: DE-BAYER-200610448BVD

PATIENT
  Age: 62 Year
  Sex: Male
  Weight: 66 kg

DRUGS (8)
  1. SORAFENIB [Suspect]
     Indication: MALIGNANT MELANOMA
     Dosage: TOTAL DAILY DOSE: 800 MG
     Route: 048
     Dates: start: 20060303
  2. PACLITAXEL [Suspect]
     Indication: MALIGNANT MELANOMA
     Route: 042
     Dates: start: 20060302, end: 20060302
  3. CARBOPLATIN [Suspect]
     Indication: MALIGNANT MELANOMA
     Route: 042
     Dates: start: 20060302, end: 20060302
  4. LEVOFLOXACIN [Concomitant]
     Route: 065
     Dates: start: 20060123, end: 20060130
  5. LEVOFLOXACIN [Concomitant]
     Route: 065
     Dates: start: 20060223, end: 20060227
  6. DIFLUCAN [Concomitant]
     Route: 065
     Dates: start: 20060223, end: 20060227
  7. DIFLUCAN [Concomitant]
     Route: 065
     Dates: start: 20060124, end: 20060130
  8. CONCOR [Concomitant]
     Route: 065
     Dates: start: 20060303, end: 20060303

REACTIONS (8)
  - ARRHYTHMIA SUPRAVENTRICULAR [None]
  - ARTERIOVENOUS FISTULA [None]
  - ASTHENIA [None]
  - ATRIAL FIBRILLATION [None]
  - BUNDLE BRANCH BLOCK LEFT [None]
  - BUNDLE BRANCH BLOCK RIGHT [None]
  - DYSPNOEA [None]
  - ELECTROCARDIOGRAM ST SEGMENT ELEVATION [None]
